FAERS Safety Report 25954310 (Version 1)
Quarter: 2025Q4

REPORT INFORMATION
  Report Type: Spontaneous
  Country: CN (occurrence: CN)
  Receive Date: 20251023
  Receipt Date: 20251023
  Transmission Date: 20260118
  Serious: Yes (Hospitalization)
  Sender: ABBVIE
  Company Number: CN-ABBVIE-6512633

PATIENT
  Age: 41 Year
  Sex: Female

DRUGS (3)
  1. BOTOX [Suspect]
     Active Substance: ONABOTULINUMTOXINA
     Indication: Face lift
     Dosage: TIME INTERVAL: AS NECESSARY: TOTAL DOSE- 100 UNITS
     Route: 065
     Dates: start: 20251002, end: 20251002
  2. BOTOX [Suspect]
     Active Substance: ONABOTULINUMTOXINA
     Indication: Face lift
     Dosage: TIME INTERVAL: AS NECESSARY: TOTAL DOSE- 100 UNITS
     Route: 065
     Dates: start: 20251002, end: 20251002
  3. BOTOX [Suspect]
     Active Substance: ONABOTULINUMTOXINA
     Indication: Face lift
     Route: 065

REACTIONS (10)
  - Toxicity to various agents [Recovering/Resolving]
  - Anxiety [Unknown]
  - Myopathy toxic [Recovering/Resolving]
  - Dizziness [Unknown]
  - Nausea [Unknown]
  - Oropharyngeal discomfort [Not Recovered/Not Resolved]
  - Hypoaesthesia oral [Not Recovered/Not Resolved]
  - Chest discomfort [Unknown]
  - Dyspnoea [Unknown]
  - Nerve injury [Unknown]

NARRATIVE: CASE EVENT DATE: 20251001
